FAERS Safety Report 13094925 (Version 5)
Quarter: 2017Q1

REPORT INFORMATION
  Report Type: Report from Study
  Country: US (occurrence: US)
  Receive Date: 20170106
  Receipt Date: 20170224
  Transmission Date: 20170428
  Serious: Yes (Hospitalization)
  Sender: FDA-Public Use
  Company Number: US-ACTELION-A-US2017-148004

PATIENT
  Age: 54 Year
  Sex: Female
  Weight: 61.68 kg

DRUGS (5)
  1. UPTRAVI [Suspect]
     Active Substance: SELEXIPAG
     Dosage: UNK MCG, BID
     Route: 048
     Dates: start: 20170105, end: 201702
  2. LETAIRIS [Concomitant]
     Active Substance: AMBRISENTAN
  3. ADCIRCA [Concomitant]
     Active Substance: TADALAFIL
  4. UPTRAVI [Suspect]
     Active Substance: SELEXIPAG
     Dosage: 200 MCG, BID
     Route: 048
  5. UPTRAVI [Suspect]
     Active Substance: SELEXIPAG
     Indication: PULMONARY ARTERIAL HYPERTENSION
     Dosage: 400 MCG, BID
     Route: 048
     Dates: start: 20161215

REACTIONS (6)
  - Diarrhoea [Unknown]
  - Somnolence [Unknown]
  - Infection [Unknown]
  - Pneumonia [Unknown]
  - Nausea [Unknown]
  - Dyspnoea [Unknown]
